FAERS Safety Report 6125125-4 (Version None)
Quarter: 2009Q1

REPORT INFORMATION
  Report Type: 
  Country: None (occurrence: None)
  Receive Date: 20090316
  Receipt Date: 20090303
  Transmission Date: 20090719
  Serious: Yes (Death)
  Sender: FDA-Public Use
  Company Number: 231557K09USA

PATIENT
  Age: 54 Year
  Sex: Female

DRUGS (2)
  1. REBIF [Suspect]
     Indication: MULTIPLE SCLEROSIS
     Dates: start: 20070101, end: 20080209
  2. UNSPECIFIED MEDICATIONS (CALL OTHER THERAPEUTIC PRODUCTS) [Concomitant]

REACTIONS (4)
  - BALANCE DISORDER [None]
  - DISEASE COMPLICATION [None]
  - FALL [None]
  - SUBDURAL HAEMATOMA [None]
